FAERS Safety Report 7021562-4 (Version None)
Quarter: 2010Q3

REPORT INFORMATION
  Report Type: 
  Country: None (occurrence: None)
  Receive Date: 20100928
  Receipt Date: 20100923
  Transmission Date: 20110219
  Serious: Yes (Hospitalization)
  Sender: FDA-Public Use
  Company Number: TIR-00227

PATIENT
  Age: 81 Year
  Sex: Female
  Weight: 68.0396 kg

DRUGS (2)
  1. TIROSINT [Suspect]
     Indication: HYPOTHYROIDISM
     Dosage: 75MCG, ONE TIME
     Dates: start: 20100908, end: 20100908
  2. SYNTHROID [Suspect]
     Indication: HYPOTHYROIDISM
     Dosage: 250MCG ONCE DAILY, 18 - 20 YEARS

REACTIONS (5)
  - DIARRHOEA [None]
  - FEELING ABNORMAL [None]
  - MUSCLE DISORDER [None]
  - THYROID DISORDER [None]
  - TREMOR [None]
